FAERS Safety Report 23678166 (Version 1)
Quarter: 2024Q1

REPORT INFORMATION
  Report Type: Spontaneous
  Country: JP (occurrence: JP)
  Receive Date: 20240327
  Receipt Date: 20240327
  Transmission Date: 20240410
  Serious: Yes (Other)
  Sender: FDA-Public Use
  Company Number: JP-RDY-LIT/JPN/24/0004914

PATIENT
  Age: 65 Year
  Sex: Male

DRUGS (2)
  1. AZACITIDINE [Suspect]
     Active Substance: AZACITIDINE
     Indication: Myelodysplastic syndrome
     Dosage: 75 MG/M2 OF AZACITIDINE FOR 7 CONSECUTIVE?DAYS, EVERY 28 DAYS
  2. INSULIN NOS [Concomitant]
     Active Substance: INSULIN NOS
     Indication: Type 2 diabetes mellitus
     Dosage: FOR THE PAST 2 YEARS
     Route: 058

REACTIONS (3)
  - Disease progression [Unknown]
  - Acute myeloid leukaemia [Unknown]
  - Treatment failure [Unknown]
